FAERS Safety Report 12172537 (Version 1)
Quarter: 2016Q1

REPORT INFORMATION
  Report Type: Spontaneous
  Country: BR (occurrence: BR)
  Receive Date: 20160311
  Receipt Date: 20160311
  Transmission Date: 20160526
  Serious: Yes (Other)
  Sender: FDA-Public Use
  Company Number: BR-JNJFOC-20160308227

PATIENT
  Sex: Female
  Weight: 79 kg

DRUGS (2)
  1. SOFOSBUVIR [Concomitant]
     Active Substance: SOFOSBUVIR
     Route: 065
  2. OLYSIO [Suspect]
     Active Substance: SIMEPREVIR
     Indication: HEPATITIS C
     Route: 065

REACTIONS (7)
  - Dengue fever [Unknown]
  - Depressed mood [Unknown]
  - Photophobia [Unknown]
  - Rash [Unknown]
  - Erythema [Unknown]
  - Pain [Unknown]
  - Headache [Unknown]
